FAERS Safety Report 20455907 (Version 1)
Quarter: 2022Q1

REPORT INFORMATION
  Report Type: Spontaneous
  Country: US (occurrence: None)
  Receive Date: 20220210
  Receipt Date: 20220210
  Transmission Date: 20220423
  Serious: Yes (Hospitalization)
  Sender: FDA-Public Use
  Company Number: None

PATIENT
  Age: 83 Year
  Sex: Male
  Weight: 129 kg

DRUGS (1)
  1. PREGABALIN [Suspect]
     Active Substance: PREGABALIN
     Dosage: 150 MG BID PO?
     Route: 048
     Dates: start: 20211208, end: 20211218

REACTIONS (7)
  - Lethargy [None]
  - Somnolence [None]
  - Accidental overdose [None]
  - Fall [None]
  - Sedation [None]
  - Product prescribing issue [None]
  - Product administration interrupted [None]

NARRATIVE: CASE EVENT DATE: 20211218
